FAERS Safety Report 16649631 (Version 1)
Quarter: 2019Q3

REPORT INFORMATION
  Report Type: Spontaneous
  Country: CH (occurrence: CH)
  Receive Date: 20190730
  Receipt Date: 20190730
  Transmission Date: 20191004
  Serious: Yes (Life-Threatening, Hospitalization)
  Sender: FDA-Public Use
  Company Number: PHHY2019CH172266

PATIENT
  Age: 65 Year
  Sex: Female
  Weight: 54 kg

DRUGS (11)
  1. CARBOPLATIN. [Suspect]
     Active Substance: CARBOPLATIN
     Indication: DIFFUSE LARGE B-CELL LYMPHOMA
     Dosage: 300 MG, CYCLIC (ON 30 MAY 2019, 20 JUN 2019 AND 12 JUL 2019 (ON D2 OF THE CYCLES)
     Route: 041
     Dates: start: 20190530, end: 20190712
  2. ETOPOPHOS [Suspect]
     Active Substance: ETOPOSIDE PHOSPHATE
     Indication: DIFFUSE LARGE B-CELL LYMPHOMA
     Dosage: 100 MG, CYCLIC (29 MAY 2019, 19 JUN 2019 AND 11 JUL 2019 WITH 2 DOSES PER CYCLE ON D1 AND D2)
     Route: 041
     Dates: start: 20190529, end: 20190712
  3. MESNA. [Concomitant]
     Active Substance: MESNA
     Indication: PRODUCT USED FOR UNKNOWN INDICATION
     Dosage: 5000 MG, UNK (D2)
     Route: 065
     Dates: start: 20190712
  4. CALCIMAGON-D 3 [Concomitant]
     Active Substance: CALCIUM CARBONATE\CHOLECALCIFEROL
     Indication: PRODUCT USED FOR UNKNOWN INDICATION
     Dosage: UNK UKN, QD (1 TAB)
     Route: 048
  5. ZYLORIC [Concomitant]
     Active Substance: ALLOPURINOL
     Indication: PRODUCT USED FOR UNKNOWN INDICATION
     Dosage: 300 MG, QD (3 DAYS)
     Route: 065
  6. DAFALGAN [Concomitant]
     Active Substance: ACETAMINOPHEN
     Indication: PRODUCT USED FOR UNKNOWN INDICATION
     Dosage: 1 G, UNK (1 TAB)
     Route: 048
  7. HOLOXAN [Suspect]
     Active Substance: IFOSFAMIDE
     Indication: DIFFUSE LARGE B-CELL LYMPHOMA
     Dosage: 5000 MG, CYCLIC (30 MAY 2019, 20 JUN 2019 AND 12 JUL 2019 GIVEN ON D2-D3 OF THE CYCLES)
     Route: 041
     Dates: start: 20190530, end: 20190713
  8. MESNA. [Concomitant]
     Active Substance: MESNA
     Dosage: 3000 MG, UNK (D3) (75 PERCENT OF THE DOSE)
     Route: 065
     Dates: start: 20190713
  9. SOLU-MEDROL [Concomitant]
     Active Substance: METHYLPREDNISOLONE SODIUM SUCCINATE
     Indication: PRODUCT USED FOR UNKNOWN INDICATION
     Dosage: 125 MG, QD (3 DAYS)
     Route: 065
  10. RIXATHON [Suspect]
     Active Substance: RITUXIMAB
     Indication: DIFFUSE LARGE B-CELL LYMPHOMA
     Dosage: 500 MG, CYCLIC (29 MAY 2019, 19 JUN 2019 AND 11 JUL 2019)
     Route: 041
     Dates: start: 20190529, end: 20190711
  11. ULTIBRO BREEZHALER [Concomitant]
     Active Substance: GLYCOPYRRONIUM\INDACATEROL
     Indication: PRODUCT USED FOR UNKNOWN INDICATION
     Dosage: UNK UKN, QD (1 INHAL CAPSULE)
     Route: 065

REACTIONS (1)
  - Acute myocardial infarction [Not Recovered/Not Resolved]

NARRATIVE: CASE EVENT DATE: 20190714
